FAERS Safety Report 7379798-9 (Version None)
Quarter: 2011Q1

REPORT INFORMATION
  Report Type: 
  Country: None (occurrence: None)
  Receive Date: 20110329
  Receipt Date: 20110325
  Transmission Date: 20110831
  Serious: Yes (Other)
  Sender: FDA-Public Use
  Company Number: US-AMGEN-USASP2011012690

PATIENT
  Age: 79 Year
  Sex: Male

DRUGS (6)
  1. IMMUNOGLOBULINS [Concomitant]
     Dosage: UNK
     Dates: start: 20100217
  2. CELLCEPT [Concomitant]
     Dosage: 500 MG, BID
  3. CORTICOSTEROIDS [Concomitant]
     Dosage: UNK
     Dates: start: 20090901
  4. PROMACTA [Concomitant]
     Dosage: UNK
     Dates: start: 20100309
  5. NPLATE [Suspect]
     Indication: IDIOPATHIC THROMBOCYTOPENIC PURPURA
     Dosage: 6.8 A?G/KG, UNK
     Dates: start: 20100526
  6. AZATHIOPRINE [Concomitant]
     Dosage: UNK
     Dates: start: 20100214

REACTIONS (1)
  - VENOUS THROMBOSIS LIMB [None]
